FAERS Safety Report 9640151 (Version 2)
Quarter: 2013Q4

REPORT INFORMATION
  Report Type: Spontaneous
  Country: US (occurrence: US)
  Receive Date: 20131023
  Receipt Date: 20131118
  Transmission Date: 20140711
  Serious: No
  Sender: FDA-Public Use
  Company Number: US-PFIZER INC-2013300007

PATIENT
  Age: 63 Year
  Sex: Male
  Weight: 70.3 kg

DRUGS (4)
  1. SUTENT [Suspect]
     Indication: METASTATIC RENAL CELL CARCINOMA
     Dosage: 50 MG ONCE DAILY, CYCLIC (4 WEEKS ON 2 WEEKS OFF)
     Route: 048
     Dates: start: 20130828
  2. DURAGESIC [Concomitant]
     Indication: PAIN
     Dosage: 100 UG, UNK
     Dates: start: 20130918
  3. ATIVAN [Concomitant]
     Indication: ANXIETY
     Dosage: 1 MG, UNK
     Dates: start: 20130918
  4. HYDROCODONE [Concomitant]
     Indication: PAIN
     Dosage: 5/325
     Dates: start: 20130911

REACTIONS (7)
  - Oral discomfort [Unknown]
  - Glossodynia [Unknown]
  - Oral pain [Unknown]
  - Dysgeusia [Unknown]
  - Decreased appetite [Not Recovered/Not Resolved]
  - Weight decreased [Not Recovered/Not Resolved]
  - Dry mouth [Unknown]
